FAERS Safety Report 26186645 (Version 1)
Quarter: 2025Q4

REPORT INFORMATION
  Report Type: Spontaneous
  Country: US (occurrence: None)
  Receive Date: 20251219
  Receipt Date: 20251219
  Transmission Date: 20260118
  Serious: Yes (Hospitalization)
  Sender: FDA-CTU
  Company Number: None

PATIENT
  Age: 84 Year
  Sex: Male

DRUGS (2)
  1. APIXABAN [Suspect]
     Active Substance: APIXABAN
     Indication: Cardiac ventricular thrombosis
     Dates: start: 20240916, end: 20250917
  2. CLOPIDOGREL BISULFATE [Suspect]
     Active Substance: CLOPIDOGREL BISULFATE
     Indication: Cardiac ventricular thrombosis
     Dates: start: 20240926

REACTIONS (7)
  - Gastritis [None]
  - Duodenitis [None]
  - Gastrointestinal tract adenoma [None]
  - Melaena [None]
  - Acute kidney injury [None]
  - Cystatin C increased [None]
  - Iron deficiency anaemia [None]

NARRATIVE: CASE EVENT DATE: 20250824
